FAERS Safety Report 21973066 (Version 2)
Quarter: 2023Q1

REPORT INFORMATION
  Report Type: Report from Study
  Country: GB (occurrence: GB)
  Receive Date: 20230209
  Receipt Date: 20230314
  Transmission Date: 20230418
  Serious: Yes (Hospitalization)
  Sender: FDA-Public Use
  Company Number: GB-CELLTRION INC-2023GB001302

PATIENT
  Age: 69 Year
  Sex: Female
  Weight: 77.1 kg

DRUGS (11)
  1. LENALIDOMIDE [Suspect]
     Active Substance: LENALIDOMIDE
     Indication: Extranodal marginal zone B-cell lymphoma (MALT type)
     Dosage: 20 MILLIGRAM, QD(DAILY,900 MILLIGARAM,DAYS 1 TO 21 OF EACH 28-DAY CYCLE)
     Route: 048
     Dates: start: 20220607, end: 20220727
  2. LENALIDOMIDE [Suspect]
     Active Substance: LENALIDOMIDE
     Dosage: 900 MILLIGRAM UNK (START DATE: 11-AUG-2022)
     Route: 048
     Dates: start: 20220607
  3. LENALIDOMIDE [Suspect]
     Active Substance: LENALIDOMIDE
     Dosage: 900 MILLIGRAM UNK (START DATE: 11-AUG-2022)
     Route: 048
     Dates: start: 20220811
  4. RITUXIMAB [Suspect]
     Active Substance: RITUXIMAB
     Indication: Extranodal marginal zone B-cell lymphoma (MALT type)
     Dosage: 700 MILLIGRAM, MONTHLY ( (LAST DOSE BEFORE SAE: 08SEP2022)
     Route: 042
     Dates: start: 20220608
  5. RITUXIMAB [Suspect]
     Active Substance: RITUXIMAB
     Dosage: 375 MG/M2 (700 MG) (WEEKLY FOR CYCLE 1 THEN DAY 1 OF CYCLES 2 TO 5)
     Route: 042
     Dates: start: 20220608
  6. RITUXIMAB [Suspect]
     Active Substance: RITUXIMAB
     Dosage: 375 MILLIGRAM/SQ. METER, QW(375 MG/M2 (700 MG) (WEEKLY FOR CYCLE 1 THEN)
     Route: 042
     Dates: start: 20220714
  7. TAFASITAMAB [Suspect]
     Active Substance: TAFASITAMAB
     Indication: Extranodal marginal zone B-cell lymphoma (MALT type)
     Dosage: (12 MG/KG(924 MG,WEEKLY FOR CYCLES 1 TO 3,THEN)
     Route: 042
     Dates: start: 20220607, end: 20220727
  8. TAFASITAMAB [Suspect]
     Active Substance: TAFASITAMAB
     Dosage: (12 MG/KG(924 MG,WEEKLY FOR CYCLES 1 TO 3,THEN) START DATE: 04-AUG-2022)
     Route: 042
     Dates: start: 20220727
  9. TAFASITAMAB [Suspect]
     Active Substance: TAFASITAMAB
     Dosage: (12 MG/KG(924 MG,WEEKLY FOR CYCLES 1 TO 3,THEN)
     Route: 042
     Dates: start: 20220804
  10. CARBOCYSTEINE [Concomitant]
     Active Substance: CARBOCYSTEINE
     Dosage: UNK
     Route: 065
     Dates: start: 2004
  11. TIOTROPIUM BROMIDE [Concomitant]
     Active Substance: TIOTROPIUM BROMIDE
     Dosage: UNK
     Route: 065

REACTIONS (3)
  - Anaemia [Recovered/Resolved]
  - Influenza [Recovered/Resolved]
  - Off label use [Unknown]

NARRATIVE: CASE EVENT DATE: 20220721
